FAERS Safety Report 21392458 (Version 2)
Quarter: 2022Q4

REPORT INFORMATION
  Report Type: Report from Study
  Country: US (occurrence: US)
  Receive Date: 20220929
  Receipt Date: 20221104
  Transmission Date: 20230113
  Serious: Yes (Hospitalization)
  Sender: FDA-Public Use
  Company Number: US-BRISTOL-MYERS SQUIBB COMPANY-2022-109279

PATIENT
  Age: 11 Year
  Sex: Male
  Weight: 65.4 kg

DRUGS (3)
  1. NIVOLUMAB [Suspect]
     Active Substance: NIVOLUMAB
     Indication: Adrenal gland cancer
     Route: 042
     Dates: start: 20220913
  2. IPILIMUMAB [Suspect]
     Active Substance: IPILIMUMAB
     Indication: Adrenal gland cancer
     Route: 042
     Dates: start: 20220913
  3. OXYCODONE [Concomitant]
     Active Substance: OXYCODONE
     Indication: Product used for unknown indication
     Route: 065
     Dates: start: 20220830

REACTIONS (1)
  - Pyrexia [Unknown]

NARRATIVE: CASE EVENT DATE: 20220919
